FAERS Safety Report 11746798 (Version 3)
Quarter: 2020Q2

REPORT INFORMATION
  Report Type: Spontaneous
  Country: US (occurrence: US)
  Receive Date: 20151117
  Receipt Date: 20200416
  Transmission Date: 20200713
  Serious: No
  Sender: FDA-Public Use
  Company Number: US-009507513-1511USA007272

PATIENT
  Age: 64 Year
  Sex: Female

DRUGS (5)
  1. JANUMET [Suspect]
     Active Substance: METFORMIN HYDROCHLORIDE\SITAGLIPTIN PHOSPHATE
     Dosage: 1 TABLET, TWICE A DAY
     Route: 048
     Dates: start: 20180503, end: 202003
  2. PRINIVIL [Concomitant]
     Active Substance: LISINOPRIL
  3. GLIPIZIDE. [Concomitant]
     Active Substance: GLIPIZIDE
  4. JANUMET [Suspect]
     Active Substance: METFORMIN HYDROCHLORIDE\SITAGLIPTIN PHOSPHATE
     Indication: DIABETES MELLITUS
     Dosage: 3 TABLETS DAILY
     Route: 048
  5. ASACOL [Concomitant]
     Active Substance: MESALAMINE

REACTIONS (10)
  - Blood glucose increased [Not Recovered/Not Resolved]
  - Eating disorder [Unknown]
  - Abdominal discomfort [Not Recovered/Not Resolved]
  - Abdominal pain upper [Unknown]
  - Thirst [Not Recovered/Not Resolved]
  - Hepatomegaly [Not Recovered/Not Resolved]
  - Product dose omission [Unknown]
  - Diarrhoea [Unknown]
  - Vision blurred [Not Recovered/Not Resolved]
  - Overdose [Unknown]

NARRATIVE: CASE EVENT DATE: 202003
